FAERS Safety Report 5082519-6 (Version None)
Quarter: 2006Q3

REPORT INFORMATION
  Report Type: 
  Country: None (occurrence: None)
  Receive Date: 20060817
  Receipt Date: 20051130
  Transmission Date: 20061208
  Serious: Yes (Other)
  Sender: FDA-Public Use
  Company Number: DE-ROCHE-426745

PATIENT
  Age: 41 Year
  Sex: Female

DRUGS (2)
  1. PEG-INTERFERON ALFA 2A (RO 25-8310) [Suspect]
     Dosage: DOSING REPORTED AS 180 MCG A WEEK.
     Route: 058
     Dates: start: 20030425, end: 20040425
  2. RIBAVIRIN [Suspect]
     Route: 048
     Dates: start: 20030425, end: 20040425

REACTIONS (3)
  - MUCOSAL INFLAMMATION [None]
  - SKIN FISSURES [None]
  - TOOTH DISORDER [None]
